FAERS Safety Report 25216867 (Version 2)
Quarter: 2025Q3

REPORT INFORMATION
  Report Type: Report from Study
  Country: US (occurrence: US)
  Receive Date: 20250419
  Receipt Date: 20250801
  Transmission Date: 20251021
  Serious: Yes (Hospitalization, Other)
  Sender: SANOFI AVENTIS
  Company Number: US-SA-2023SA361503

PATIENT
  Age: 72 Year
  Sex: Male
  Weight: 79.27 kg

DRUGS (36)
  1. DOCETAXEL [Suspect]
     Active Substance: DOCETAXEL
     Indication: Prostate cancer
     Dosage: 95 MG, Q3W
     Route: 042
     Dates: start: 20231025, end: 20231025
  2. DOCETAXEL [Suspect]
     Active Substance: DOCETAXEL
     Dosage: 110 MG, Q3W
     Route: 042
     Dates: start: 20240207, end: 20240207
  3. DOCETAXEL [Suspect]
     Active Substance: DOCETAXEL
     Dosage: 113 MG, Q3W
     Route: 042
     Dates: start: 20240306, end: 20240306
  4. DOCETAXEL [Suspect]
     Active Substance: DOCETAXEL
     Dosage: 113 MG, Q3W
     Route: 042
     Dates: start: 20240327, end: 20240327
  5. DOCETAXEL [Suspect]
     Active Substance: DOCETAXEL
     Dosage: 113 MG, Q3W
     Route: 042
     Dates: start: 20240424, end: 20240424
  6. DOCETAXEL [Suspect]
     Active Substance: DOCETAXEL
     Dosage: 115 MG, Q3W
     Route: 042
     Dates: start: 20240612, end: 20240612
  7. DOCETAXEL [Suspect]
     Active Substance: DOCETAXEL
     Dosage: 113 MG, Q3W
     Route: 042
     Dates: start: 20240703, end: 20240703
  8. DOCETAXEL [Suspect]
     Active Substance: DOCETAXEL
     Dosage: 113 MG, Q3W
     Route: 042
     Dates: start: 20240724, end: 20240724
  9. CARBOPLATIN [Suspect]
     Active Substance: CARBOPLATIN
     Indication: Adenocarcinoma metastatic
     Dosage: 279 MG, Q3W
     Route: 042
     Dates: start: 20231025, end: 20231025
  10. CARBOPLATIN [Suspect]
     Active Substance: CARBOPLATIN
     Dosage: 363 MG, Q3W
     Route: 042
     Dates: start: 20230207, end: 20230207
  11. CARBOPLATIN [Suspect]
     Active Substance: CARBOPLATIN
     Dosage: 402 MG, Q3W
     Route: 042
     Dates: start: 20240306, end: 20240306
  12. CARBOPLATIN [Suspect]
     Active Substance: CARBOPLATIN
     Dosage: 375 MG, Q3W
     Route: 042
     Dates: start: 20240327, end: 20240327
  13. CARBOPLATIN [Suspect]
     Active Substance: CARBOPLATIN
     Dosage: 395 MG, Q3W
     Route: 042
     Dates: start: 20240424, end: 20240424
  14. CARBOPLATIN [Suspect]
     Active Substance: CARBOPLATIN
     Dosage: 413 MG, Q3W
     Route: 042
     Dates: start: 20240612, end: 20240612
  15. CARBOPLATIN [Suspect]
     Active Substance: CARBOPLATIN
     Dosage: 402 MG, Q3W
     Route: 042
     Dates: start: 20240703, end: 20240703
  16. CARBOPLATIN [Suspect]
     Active Substance: CARBOPLATIN
     Dosage: 435 MG, Q3W
     Route: 042
     Dates: start: 20240724, end: 20240724
  17. ZYRTEC [Concomitant]
     Active Substance: CETIRIZINE HYDROCHLORIDE
     Dates: start: 202010
  18. VALSARTAN AND HYDROCHLOROTHIAZIDE [Concomitant]
     Active Substance: HYDROCHLOROTHIAZIDE\VALSARTAN
     Dates: start: 201906
  19. LIPITOR [Concomitant]
     Active Substance: ATORVASTATIN CALCIUM
     Dates: start: 202211
  20. IBUPROFEN [Concomitant]
     Active Substance: IBUPROFEN
     Dates: start: 2021
  21. TYLENOL [Concomitant]
     Active Substance: ACETAMINOPHEN
     Dates: start: 2021
  22. FLOMAX [Concomitant]
     Active Substance: TAMSULOSIN HYDROCHLORIDE
     Dates: start: 201911
  23. VITAMINS NOS [Concomitant]
     Active Substance: VITAMINS
     Dates: start: 2010
  24. IRON [Concomitant]
     Active Substance: IRON
     Dates: start: 20231017
  25. CALCIUM CITRATE [Concomitant]
     Active Substance: CALCIUM CITRATE
     Dates: start: 20231025
  26. PROCHLORPERAZINE MALEATE [Concomitant]
     Active Substance: PROCHLORPERAZINE MALEATE
     Dates: start: 20231027
  27. SENNOSIDES A AND B [Concomitant]
     Active Substance: SENNOSIDES A AND B
     Dates: start: 20231027
  28. BACTRIM [Concomitant]
     Active Substance: SULFAMETHOXAZOLE\TRIMETHOPRIM
     Dates: start: 20231129
  29. CETIRIZINE [Concomitant]
     Active Substance: CETIRIZINE HYDROCHLORIDE
     Dates: start: 20231130
  30. MIRALAX [Concomitant]
     Active Substance: POLYETHYLENE GLYCOL 3350
     Dates: start: 20240228
  31. CEFIXIME [Concomitant]
     Active Substance: CEFIXIME
     Dates: start: 20240408
  32. CLARITIN [Concomitant]
     Active Substance: LORATADINE
     Dates: start: 20240410
  33. DOCUSATE [Concomitant]
     Active Substance: DOCUSATE
  34. NORCO [Concomitant]
     Active Substance: ACETAMINOPHEN\HYDROCODONE BITARTRATE
  35. GABAPENTIN [Concomitant]
     Active Substance: GABAPENTIN
  36. XARELTO [Concomitant]
     Active Substance: RIVAROXABAN

REACTIONS (3)
  - Immune-mediated lung disease [Recovered/Resolved]
  - Colitis [Recovered/Resolved]
  - Diarrhoea [Recovered/Resolved]

NARRATIVE: CASE EVENT DATE: 20240429
